FAERS Safety Report 10164593 (Version 1)
Quarter: 2014Q2

REPORT INFORMATION
  Report Type: Spontaneous
  Country: US (occurrence: US)
  Receive Date: 20140510
  Receipt Date: 20140510
  Transmission Date: 20141212
  Serious: No
  Sender: FDA-Public Use
  Company Number: US-BRISTOL-MYERS SQUIBB COMPANY-19588698

PATIENT
  Age: 70 Year
  Sex: Female
  Weight: 83.9 kg

DRUGS (1)
  1. BYDUREON [Suspect]
     Indication: TYPE 2 DIABETES MELLITUS
     Dosage: LAST INJECTION  26SEP2013
     Route: 058
     Dates: start: 2013

REACTIONS (3)
  - Constipation [Recovered/Resolved]
  - Diarrhoea [Recovered/Resolved]
  - Injection site nodule [Unknown]
